FAERS Safety Report 15907132 (Version 2)
Quarter: 2019Q1

REPORT INFORMATION
  Report Type: Spontaneous
  Country: US (occurrence: US)
  Receive Date: 20190204
  Receipt Date: 20190214
  Transmission Date: 20190417
  Serious: No
  Sender: FDA-Public Use
  Company Number: US-PFIZER INC-2019051192

PATIENT
  Sex: Male

DRUGS (1)
  1. TRIAZOLAM. [Suspect]
     Active Substance: TRIAZOLAM
     Indication: NIGHTMARE
     Dosage: 1.25 MG, 1X/DAY [0.25 MG 5 EACH NIGHT/FIVE 0.25MG TABLETS TAKEN BY MOUTH NIGHTLY]
     Route: 048

REACTIONS (1)
  - Product use issue [Unknown]
